FAERS Safety Report 15792530 (Version 1)
Quarter: 2019Q1

REPORT INFORMATION
  Report Type: Spontaneous
  Country: CN (occurrence: CN)
  Receive Date: 20190107
  Receipt Date: 20190107
  Transmission Date: 20190417
  Serious: Yes (Other)
  Sender: FDA-Public Use
  Company Number: CN-ROCHE-2238466

PATIENT
  Age: 39 Year
  Sex: Male

DRUGS (17)
  1. FLUOROURACIL. [Concomitant]
     Active Substance: FLUOROURACIL
     Dosage: 3 CYCLE
     Route: 042
  2. TEGAFUR [Concomitant]
     Active Substance: TEGAFUR
     Indication: TUMOUR ULCERATION
     Dosage: 3 CAPSULES, D1-14 1CYCLE
     Route: 065
     Dates: start: 20131127
  3. IRINOTECAN [Concomitant]
     Active Substance: IRINOTECAN
     Indication: TUMOUR ULCERATION
     Dosage: 4 CYCLES
     Route: 065
  4. CALCIUM FOLINATE [Concomitant]
     Active Substance: LEUCOVORIN CALCIUM
     Dosage: 1 CYCLE
     Route: 065
     Dates: start: 20131213
  5. TEGAFUR [Concomitant]
     Active Substance: TEGAFUR
     Dosage: DAY1-14, Q 21DAY
     Route: 065
     Dates: start: 20161020
  6. CAPECITABINE. [Suspect]
     Active Substance: CAPECITABINE
     Indication: TUMOUR ULCERATION
     Dosage: DAY1-14, Q21DAY?ON 26/FEB/2016 CAPECITABINE WAS RECEIVED.
     Route: 048
     Dates: start: 20120620
  7. OXALIPLATIN. [Concomitant]
     Active Substance: OXALIPLATIN
     Dosage: 1 CYCLE
     Route: 065
     Dates: start: 20131213
  8. CALCIUM FOLINATE [Concomitant]
     Active Substance: LEUCOVORIN CALCIUM
     Dosage: 3 CYCLE
     Route: 065
  9. FLUOROURACIL. [Concomitant]
     Active Substance: FLUOROURACIL
     Indication: TUMOUR ULCERATION
     Dosage: 7 CYCLE
     Route: 042
  10. FLUOROURACIL. [Concomitant]
     Active Substance: FLUOROURACIL
     Dosage: 3 CYCLE
     Route: 042
  11. FLUOROURACIL. [Concomitant]
     Active Substance: FLUOROURACIL
     Dosage: 1 CYCLE
     Route: 042
     Dates: start: 20131213
  12. OXALIPLATIN. [Concomitant]
     Active Substance: OXALIPLATIN
     Dosage: 7 CYCLE
     Route: 065
  13. FLUOROURACIL. [Concomitant]
     Active Substance: FLUOROURACIL
     Dosage: 7 CYCLE
     Route: 042
  14. APATINIB [Concomitant]
     Active Substance: APATINIB
  15. OXALIPLATIN. [Concomitant]
     Active Substance: OXALIPLATIN
     Indication: TUMOUR ULCERATION
     Dosage: DAY 1, Q21
     Route: 065
     Dates: start: 20120620
  16. CALCIUM FOLINATE [Concomitant]
     Active Substance: LEUCOVORIN CALCIUM
     Indication: TUMOUR ULCERATION
     Dosage: 7 CYCLE
     Route: 065
  17. FLUOROURACIL. [Concomitant]
     Active Substance: FLUOROURACIL
     Dosage: 1 CYCLE
     Route: 042
     Dates: start: 20131213

REACTIONS (7)
  - Ill-defined disorder [Unknown]
  - Disease progression [Unknown]
  - Hypoaesthesia [Unknown]
  - Drug-induced liver injury [Unknown]
  - Back pain [Unknown]
  - Chest pain [Unknown]
  - Bone marrow failure [Unknown]

NARRATIVE: CASE EVENT DATE: 20161110
